FAERS Safety Report 4541884-6 (Version None)
Quarter: 2004Q4

REPORT INFORMATION
  Report Type: 
  Country: None (occurrence: None)
  Receive Date: 20041227
  Receipt Date: 20041208
  Transmission Date: 20050328
  Serious: Yes (Hospitalization)
  Sender: FDA-Public Use
  Company Number: S04-FRA-08162-01

PATIENT
  Age: 35 Year
  Sex: Female

DRUGS (2)
  1. PROPESS              (DINOPROSTONE) [Suspect]
     Indication: LABOUR INDUCTION
     Dosage: 10 MG ONCE VG
     Route: 067
     Dates: start: 20040524
  2. SEDATIVE     (NOS) [Concomitant]

REACTIONS (5)
  - ABASIA [None]
  - CAESAREAN SECTION [None]
  - CERVIX DISORDER [None]
  - DRUG EXPOSURE DURING PREGNANCY [None]
  - PELVIC PAIN [None]
